FAERS Safety Report 24785048 (Version 1)
Quarter: 2024Q4

REPORT INFORMATION
  Report Type: Spontaneous
  Country: US (occurrence: None)
  Receive Date: 20241226
  Receipt Date: 20241226
  Transmission Date: 20250115
  Serious: Yes (unspecified)
  Sender: Public
  Company Number: None

PATIENT
  Sex: Female

DRUGS (4)
  1. CANNABIDIOL\HERBALS\TETRAHYDROCANNABINOL UNSPECIFIED [Suspect]
     Active Substance: CANNABIDIOL\HERBALS\TETRAHYDROCANNABINOL UNSPECIFIED
  2. HERBALS\MITRAGYNINE [Suspect]
     Active Substance: HERBALS\MITRAGYNINE
  3. LITHIUM [Suspect]
     Active Substance: LITHIUM
  4. KLONOPIN [Suspect]
     Active Substance: CLONAZEPAM

REACTIONS (3)
  - Mental status changes [None]
  - Lethargy [None]
  - Drug interaction [None]

NARRATIVE: CASE EVENT DATE: 20241203
